FAERS Safety Report 9925106 (Version 1)
Quarter: 2014Q1

REPORT INFORMATION
  Report Type: Spontaneous
  Country: US (occurrence: None)
  Receive Date: 20140221
  Receipt Date: 20140221
  Transmission Date: 20141002
  Serious: No
  Sender: FDA-Public Use
  Company Number: ADR-2014-00274

PATIENT
  Age: 74 Year
  Sex: Male

DRUGS (1)
  1. BACLOFEN INTRATHECAL [Suspect]
     Indication: CEREBROVASCULAR ACCIDENT
     Dosage: 33 OR 31^

REACTIONS (3)
  - Localised infection [None]
  - Erythema [None]
  - Feeling hot [None]
